FAERS Safety Report 6168306-6 (Version None)
Quarter: 2009Q2

REPORT INFORMATION
  Report Type: 
  Country: None (occurrence: None)
  Receive Date: 20090427
  Receipt Date: 20090415
  Transmission Date: 20091009
  Serious: Yes (Life-Threatening, Hospitalization, Other)
  Sender: FDA-Public Use
  Company Number: GB-PFIZER INC-2009190714

PATIENT

DRUGS (21)
  1. VFEND [Suspect]
     Indication: BRONCHOPULMONARY ASPERGILLOSIS
     Dosage: 200 MG, 2X/DAY
     Route: 048
     Dates: start: 20090214, end: 20090325
  2. VFEND [Suspect]
     Indication: INTESTINAL FUNCTIONAL DISORDER
  3. VFEND [Suspect]
     Indication: INFECTION
  4. CICLOSPORIN [Concomitant]
  5. PREDNISOLONE [Concomitant]
  6. MYCOPHENOLATE MOFETIL [Concomitant]
  7. DILTIAZEM [Concomitant]
  8. RAMIPRIL [Concomitant]
  9. ACETYLSALICYLIC ACID [Concomitant]
  10. CLOPIDOGREL [Concomitant]
  11. INSULIN HUMAN [Concomitant]
  12. CREON [Concomitant]
  13. RANITIDINE [Concomitant]
  14. RISEDRONATE SODIUM [Concomitant]
  15. ADCAL-D3 [Concomitant]
  16. ALFACALCIDOL [Concomitant]
  17. BUDESONIDE [Concomitant]
  18. AZITHROMYCIN [Concomitant]
  19. NICORANDIL [Concomitant]
  20. URSODEOXYCHOLIC ACID [Concomitant]
  21. VITAMIN E [Concomitant]

REACTIONS (2)
  - GASTROINTESTINAL OBSTRUCTION [None]
  - PERITONITIS [None]
